FAERS Safety Report 6668281-1 (Version None)
Quarter: 2010Q2

REPORT INFORMATION
  Report Type: 
  Country: None (occurrence: None)
  Receive Date: 20100405
  Receipt Date: 20100405
  Transmission Date: 20101027
  Serious: Yes (Hospitalization)
  Sender: FDA-Public Use
  Company Number: None

PATIENT
  Sex: Male
  Weight: 83.9154 kg

DRUGS (1)
  1. ATROPINE [Suspect]
     Indication: PREOPERATIVE CARE
     Dosage: 1 DROP 2X DAY EYE
     Dates: start: 20100317

REACTIONS (1)
  - DYSURIA [None]
